FAERS Safety Report 8909865 (Version 1)
Quarter: 2012Q4

REPORT INFORMATION
  Report Type: 
  Country: US (occurrence: US)
  Receive Date: 20121114
  Receipt Date: 20121114
  Transmission Date: 20130627
  Serious: No
  Sender: FDA-Public Use
  Company Number: US-ASTRAZENECA-2012SE83732

PATIENT
  Age: 60 Year
  Sex: Female
  Weight: 59.9 kg

DRUGS (1)
  1. TOPROL XL [Suspect]
     Route: 048

REACTIONS (1)
  - Eosinophil count increased [Unknown]
